FAERS Safety Report 8968593 (Version 1)
Quarter: 2012Q4

REPORT INFORMATION
  Report Type: Spontaneous
  Country: CA (occurrence: None)
  Receive Date: 20121207
  Receipt Date: 20121207
  Transmission Date: 20130627
  Serious: Yes (Death, Other)
  Sender: FDA-Public Use
  Company Number: UTC-026165

PATIENT
  Age: 48 Year
  Sex: Female

DRUGS (2)
  1. REMODULIN (INJECTION FOR INFUSION) (TREPROSTINIL SODIUM) [Suspect]
     Indication: PULMONARY ARTERIAL HYPERTENSION
     Route: 058
  2. LETAIRIS (AMBRISENTAN) [Concomitant]

REACTIONS (1)
  - Death [None]
